FAERS Safety Report 17897632 (Version 2)
Quarter: 2020Q2

REPORT INFORMATION
  Report Type: Report from Study
  Country: US (occurrence: US)
  Receive Date: 20200615
  Receipt Date: 20200622
  Transmission Date: 20200714
  Serious: No
  Sender: FDA-Public Use
  Company Number: NVSC2020US165948

PATIENT
  Age: 28 Year
  Sex: Female
  Weight: 77.1 kg

DRUGS (1)
  1. GILENYA [Suspect]
     Active Substance: FINGOLIMOD HYDROCHLORIDE
     Indication: MULTIPLE SCLEROSIS
     Dosage: 0.5 MG
     Route: 048
     Dates: start: 20200609

REACTIONS (4)
  - Decreased interest [Unknown]
  - Dizziness [Unknown]
  - Chest pain [Unknown]
  - Depression [Unknown]

NARRATIVE: CASE EVENT DATE: 20200619
